FAERS Safety Report 15153946 (Version 1)
Quarter: 2018Q3

REPORT INFORMATION
  Report Type: Spontaneous
  Country: US (occurrence: US)
  Receive Date: 20180717
  Receipt Date: 20180717
  Transmission Date: 20181010
  Serious: No
  Sender: FDA-Public Use
  Company Number: US-TEVA-2018-US-926642

PATIENT
  Age: 70 Year
  Sex: Female

DRUGS (3)
  1. ESTRADIOL. [Suspect]
     Active Substance: ESTRADIOL
     Route: 065
  2. ESTRADIOL. [Suspect]
     Active Substance: ESTRADIOL
     Route: 067
     Dates: start: 201803, end: 201805
  3. ESTRADIOL. [Suspect]
     Active Substance: ESTRADIOL
     Route: 067
     Dates: start: 20180702

REACTIONS (4)
  - Wrong technique in product usage process [Unknown]
  - Discomfort [Unknown]
  - Pain [Unknown]
  - Atrophic vulvovaginitis [Unknown]

NARRATIVE: CASE EVENT DATE: 201805
